FAERS Safety Report 23335745 (Version 3)
Quarter: 2024Q1

REPORT INFORMATION
  Report Type: Spontaneous
  Country: FR (occurrence: None)
  Receive Date: 20231225
  Receipt Date: 20240131
  Transmission Date: 20240410
  Serious: Yes (Other)
  Sender: FDA-Public Use
  Company Number: 2023A292610

PATIENT
  Age: 2 Month
  Sex: Male

DRUGS (1)
  1. BEYFORTUS [Suspect]
     Active Substance: NIRSEVIMAB-ALIP
     Indication: Respiratory syncytial virus infection
     Dosage: 50 MG50.0MG UNKNOWN
     Route: 030
     Dates: start: 20231005, end: 20231005

REACTIONS (1)
  - Respiratory syncytial virus bronchiolitis [Recovered/Resolved with Sequelae]

NARRATIVE: CASE EVENT DATE: 20231213
